FAERS Safety Report 13102878 (Version 5)
Quarter: 2017Q3

REPORT INFORMATION
  Report Type: Report from Study
  Country: US (occurrence: US)
  Receive Date: 20170110
  Receipt Date: 20170731
  Transmission Date: 20171127
  Serious: Yes (Death, Hospitalization, Other)
  Sender: FDA-Public Use
  Company Number: US-ACTELION-A-NJ2017-147843

PATIENT
  Age: 73 Year
  Sex: Female
  Weight: 56.69 kg

DRUGS (8)
  1. FELODIPINE. [Concomitant]
     Active Substance: FELODIPINE
  2. OXYGEN. [Concomitant]
     Active Substance: OXYGEN
     Dosage: 6 L, UNK
  3. VELETRI [Suspect]
     Active Substance: EPOPROSTENOL
     Dosage: 40 NG/KG, PER MIN
     Route: 042
  4. VELETRI [Suspect]
     Active Substance: EPOPROSTENOL
     Dosage: 20 NG/KG PER MIN
     Route: 042
     Dates: start: 20161031
  5. NIFEDIPINE. [Concomitant]
     Active Substance: NIFEDIPINE
  6. VELETRI [Suspect]
     Active Substance: EPOPROSTENOL
     Dosage: 28 NG/KG PER MIN
     Route: 042
  7. VELETRI [Suspect]
     Active Substance: EPOPROSTENOL
     Indication: PULMONARY HYPERTENSION
     Dosage: 36 NG/KG, PER MIN
     Route: 042
  8. VELETRI [Suspect]
     Active Substance: EPOPROSTENOL
     Dosage: 32 NG/KG PER MIN
     Route: 042

REACTIONS (16)
  - Pain in extremity [Unknown]
  - Pneumonia [Unknown]
  - Flushing [Unknown]
  - Dyspnoea [Unknown]
  - Rash macular [Unknown]
  - Diarrhoea [Unknown]
  - Cough [Unknown]
  - Pleural effusion [Unknown]
  - Cardiac failure congestive [Unknown]
  - Lymphadenectomy [Unknown]
  - Pulmonary arterial hypertension [Unknown]
  - Death [Fatal]
  - Cardiac infection [Unknown]
  - Condition aggravated [Unknown]
  - Dyspnoea exertional [Unknown]
  - General physical health deterioration [Unknown]

NARRATIVE: CASE EVENT DATE: 20170723
